FAERS Safety Report 25124830 (Version 3)
Quarter: 2025Q2

REPORT INFORMATION
  Report Type: Report from Study
  Country: CA (occurrence: CA)
  Receive Date: 20250326
  Receipt Date: 20250423
  Transmission Date: 20250717
  Serious: Yes (Hospitalization, Other)
  Sender: IPSEN BIOPHARMACEUTICALS, INC.
  Company Number: CA-IPSEN Group, Research and Development-2021-27896

PATIENT
  Age: 76 Year
  Sex: Male

DRUGS (7)
  1. LANREOTIDE ACETATE [Suspect]
     Active Substance: LANREOTIDE ACETATE
     Indication: Acromegaly
     Dosage: 120 MG EVERY 4 WEEKS, DEEP SC
     Route: 058
     Dates: start: 20150402
  2. LANREOTIDE ACETATE [Suspect]
     Active Substance: LANREOTIDE ACETATE
     Dosage: 120 MG EVERY 4 WEEKS/MONTHLY VIA DEEP SUBCUTANEOUS
     Route: 058
  3. CABERGOLINE [Concomitant]
     Active Substance: CABERGOLINE
     Dosage: 0.75 MG 2X/WEEK
  4. METHIMAZOLE [Concomitant]
     Active Substance: METHIMAZOLE
     Dosage: 2.5 MG PO EVERY TWO DAYS
     Route: 048
  5. CIPROFLOXACIN [Concomitant]
     Active Substance: CIPROFLOXACIN
     Dosage: BID FOR 7 DAYS
     Route: 048
  6. RIVA FINASTERIDE [Concomitant]
     Route: 048
  7. DEXAMETHASONE [Concomitant]
     Active Substance: DEXAMETHASONE
     Dates: start: 20230906

REACTIONS (20)
  - Escherichia urinary tract infection [Not Recovered/Not Resolved]
  - Haemorrhage urinary tract [Recovered/Resolved]
  - Urinary tract infection [Recovered/Resolved]
  - Urinary tract infection [Not Recovered/Not Resolved]
  - Prostate infection [Recovering/Resolving]
  - Urinary tract infection fungal [Unknown]
  - Haemoglobin decreased [Unknown]
  - Urinary retention [Unknown]
  - Escherichia urinary tract infection [Not Recovered/Not Resolved]
  - Dizziness [Recovered/Resolved]
  - Balance disorder [Recovered/Resolved]
  - Fall [Recovered/Resolved]
  - Goitre [Not Recovered/Not Resolved]
  - Urinary tract infection [Recovering/Resolving]
  - Benign prostatic hyperplasia [Unknown]
  - Urinary tract infection bacterial [Unknown]
  - Urinary tract infection viral [Unknown]
  - Dysuria [Unknown]
  - Prostatitis [Recovering/Resolving]
  - Urinary tract infection bacterial [Not Recovered/Not Resolved]

NARRATIVE: CASE EVENT DATE: 20211001
